FAERS Safety Report 14719833 (Version 1)
Quarter: 2018Q1

REPORT INFORMATION
  Report Type: Spontaneous
  Country: US (occurrence: US)
  Receive Date: 20180330
  Receipt Date: 20180330
  Transmission Date: 20180509
  Serious: Yes (Other)
  Sender: FDA-Public Use
  Company Number: None

PATIENT
  Age: 59 Year
  Sex: Female
  Weight: 87.4 kg

DRUGS (4)
  1. PACLITAXEL. [Concomitant]
     Active Substance: PACLITAXEL
     Dates: start: 20180328, end: 20180328
  2. PACLITAXEL. [Suspect]
     Active Substance: PACLITAXEL
     Indication: OVARIAN CANCER
     Dosage: ?          OTHER FREQUENCY:EVERY 21 DAYS;?
     Route: 040
     Dates: start: 20180328, end: 20180328
  3. EMEND (FOSAPREPITANT) [Concomitant]
     Dates: start: 20180328, end: 20180328
  4. FOSAPREPITANT [Suspect]
     Active Substance: FOSAPREPITANT
     Indication: NAUSEA
     Dosage: ?          OTHER FREQUENCY:ONCE;?
     Route: 040

REACTIONS (3)
  - Chest discomfort [None]
  - Flushing [None]
  - Back pain [None]

NARRATIVE: CASE EVENT DATE: 20180328
